FAERS Safety Report 21670659 (Version 1)
Quarter: 2022Q4

REPORT INFORMATION
  Report Type: Spontaneous
  Country: US (occurrence: US)
  Receive Date: 20221202
  Receipt Date: 20221202
  Transmission Date: 20230113
  Serious: No
  Sender: FDA-Public Use
  Company Number: US-VIIV HEALTHCARE LIMITED-US2022174103

PATIENT
  Age: 59 Year
  Sex: Female

DRUGS (2)
  1. RILPIVIRINE [Suspect]
     Active Substance: RILPIVIRINE
     Indication: HIV infection
     Dosage: UNK UNK, Z: EVERY-2-MONTH, 600MG/900MG KIT: 600MG CABOTEGRAVIR+900MG RILPIVIRINE
     Route: 065
  2. CABOTEGRAVIR [Suspect]
     Active Substance: CABOTEGRAVIR
     Indication: HIV infection
     Dosage: UNK UNK, Z: EVERY-2-MONTH, 600MG/900MG KIT: 600MG CABOTEGRAVIR+900MG RILPIVIRINE
     Route: 065

REACTIONS (1)
  - Weight increased [Unknown]
